FAERS Safety Report 26209602 (Version 1)
Quarter: 2025Q4

REPORT INFORMATION
  Report Type: Spontaneous
  Country: US (occurrence: US)
  Receive Date: 20251229
  Receipt Date: 20251229
  Transmission Date: 20260119
  Serious: Yes (Death, Life-Threatening, Hospitalization, Other)
  Sender: PFIZER
  Company Number: US-PFIZER INC-PV202500148263

PATIENT
  Age: 35 Year
  Sex: Male

DRUGS (3)
  1. BLEOMYCIN SULFATE [Suspect]
     Active Substance: BLEOMYCIN SULFATE
     Indication: Seminoma
     Dosage: UNK, CYCLIC
  2. CISPLATIN [Concomitant]
     Active Substance: CISPLATIN
     Indication: Seminoma
     Dosage: UNK
  3. ETOPOSIDE [Concomitant]
     Active Substance: ETOPOSIDE
     Indication: Seminoma
     Dosage: UNK

REACTIONS (1)
  - Acute respiratory distress syndrome [Fatal]
